FAERS Safety Report 13721716 (Version 4)
Quarter: 2020Q1

REPORT INFORMATION
  Report Type: Spontaneous
  Country: US (occurrence: US)
  Receive Date: 20170706
  Receipt Date: 20200106
  Transmission Date: 20200409
  Serious: No
  Sender: FDA-Public Use
  Company Number: US-PFIZER INC-2016252212

PATIENT
  Age: 54 Year
  Sex: Female
  Weight: 79.37 kg

DRUGS (11)
  1. TRILEPTAL [Concomitant]
     Active Substance: OXCARBAZEPINE
     Dosage: 75 MG, DAILY  [TAKE 1/2 TAB]
  2. ZOLOFT [Concomitant]
     Active Substance: SERTRALINE HYDROCHLORIDE
     Dosage: 50 MG, DAILY
     Route: 048
  3. PHENYTOIN. [Concomitant]
     Active Substance: PHENYTOIN
     Dosage: UNK
  4. LYRICA [Suspect]
     Active Substance: PREGABALIN
     Indication: FOCAL DYSCOGNITIVE SEIZURES
     Dosage: 150 MG, 2X/DAY
     Route: 048
  5. LYRICA [Suspect]
     Active Substance: PREGABALIN
     Indication: PARTIAL SEIZURES
  6. DILANTIN [Suspect]
     Active Substance: PHENYTOIN
     Indication: SEIZURE
     Dosage: 300 MG, 3X/DAY (ONE IN MORNING, ONE AT LUNCH, ONE AT BEDTIME)
     Route: 048
  7. DILANTIN INFATABS [Concomitant]
     Active Substance: PHENYTOIN
     Dosage: 50 MG, 1X/DAY (ONE AT 3PM)
  8. LYRICA [Suspect]
     Active Substance: PREGABALIN
     Indication: SIMPLE PARTIAL SEIZURES
  9. ATIVAN [Concomitant]
     Active Substance: LORAZEPAM
     Indication: SEIZURE
     Dosage: 0.5 MG, AS NEEDED[MAY DO TWICE A DAY FOR NO MORE THAN 4 TIMES PER WEEK. TAKING ABOUT 3 TIMES A WEEK]
     Route: 048
  10. LYRICA [Suspect]
     Active Substance: PREGABALIN
     Indication: ANXIETY
  11. LYRICA [Suspect]
     Active Substance: PREGABALIN
     Indication: SEIZURE

REACTIONS (1)
  - Peripheral swelling [Recovered/Resolved]
